FAERS Safety Report 7374808-7 (Version None)
Quarter: 2011Q1

REPORT INFORMATION
  Report Type: 
  Country: None (occurrence: None)
  Receive Date: 20110325
  Receipt Date: 20101210
  Transmission Date: 20110831
  Serious: No
  Sender: FDA-Public Use
  Company Number: US-MYLANLABS-2010S1022830

PATIENT
  Age: 38 Year
  Sex: Female

DRUGS (6)
  1. TRAZODONE [Concomitant]
  2. XANAX [Concomitant]
  3. FENTANYL-100 [Suspect]
     Indication: BACK PAIN
     Dosage: CHANGED Q72H
     Route: 062
     Dates: start: 20080101
  4. LORTAB [Concomitant]
     Indication: BREAKTHROUGH PAIN
  5. LYRICA [Concomitant]
  6. ZYPREXA [Concomitant]

REACTIONS (6)
  - DRUG EFFECT INCREASED [None]
  - VOMITING [None]
  - DRUG WITHDRAWAL SYNDROME [None]
  - DRUG EFFECT DECREASED [None]
  - HEADACHE [None]
  - PAIN [None]
